FAERS Safety Report 11620662 (Version 2)
Quarter: 2015Q4

REPORT INFORMATION
  Report Type: Spontaneous
  Country: US (occurrence: US)
  Receive Date: 20151012
  Receipt Date: 20151119
  Transmission Date: 20160304
  Serious: No
  Sender: FDA-Public Use
  Company Number: US-PFIZER INC-2015336469

PATIENT
  Age: 66 Year
  Sex: Female

DRUGS (3)
  1. NICOTINE. [Suspect]
     Active Substance: NICOTINE
     Dosage: 4 MG, AS NEEDED
     Dates: start: 20150720
  2. NICOTINE. [Suspect]
     Active Substance: NICOTINE
     Dosage: 28 MG, UNK
  3. NICOTROL [Suspect]
     Active Substance: NICOTINE
     Indication: SMOKING CESSATION THERAPY
     Dosage: 10MG/CARTRIDGE AS NEEDED, WENT THROUGH 3 CARTRIDGES
     Dates: start: 20151003, end: 20151004

REACTIONS (2)
  - Product quality issue [Not Recovered/Not Resolved]
  - Drug ineffective [Not Recovered/Not Resolved]

NARRATIVE: CASE EVENT DATE: 20151003
